FAERS Safety Report 23375747 (Version 1)
Quarter: 2024Q1

REPORT INFORMATION
  Report Type: Report from Study
  Country: GB (occurrence: GB)
  Receive Date: 20240107
  Receipt Date: 20240107
  Transmission Date: 20240410
  Serious: Yes (Other)
  Sender: FDA-Public Use
  Company Number: GB-002147023-NVSC2023GB240955

PATIENT
  Age: 82 Year
  Sex: Female

DRUGS (1)
  1. AIMOVIG [Suspect]
     Active Substance: ERENUMAB-AOOE
     Indication: Product used for unknown indication
     Dosage: UNK
     Route: 058
     Dates: start: 20231231

REACTIONS (4)
  - Leukaemia [Unknown]
  - Influenza [Unknown]
  - Asthenia [Unknown]
  - Inappropriate schedule of product administration [Unknown]
